FAERS Safety Report 16846532 (Version 2)
Quarter: 2020Q3

REPORT INFORMATION
  Report Type: Spontaneous
  Country: US (occurrence: US)
  Receive Date: 20190924
  Receipt Date: 20200722
  Transmission Date: 20201102
  Serious: Yes (Death, Hospitalization, Other)
  Sender: FDA-Public Use
  Company Number: US-GILEAD-2019-0429240

PATIENT
  Sex: Male
  Weight: 68.03 kg

DRUGS (51)
  1. AMOXICILLIN. [Concomitant]
     Active Substance: AMOXICILLIN
  2. CYMBALTA [Concomitant]
     Active Substance: DULOXETINE HYDROCHLORIDE
  3. LEVETIRACETAM. [Concomitant]
     Active Substance: LEVETIRACETAM
  4. VIAGRA [SILDENAFIL] [Concomitant]
  5. ZYRTEC [Concomitant]
     Active Substance: CETIRIZINE HYDROCHLORIDE
  6. ABACAVIR;LAMIVUDINE [Concomitant]
     Active Substance: ABACAVIR\LAMIVUDINE
  7. FLUCONAZOLE. [Concomitant]
     Active Substance: FLUCONAZOLE
  8. GABAPENTIN. [Concomitant]
     Active Substance: GABAPENTIN
  9. SENNA ACUTIFOLIA [Concomitant]
  10. CLONIDINE. [Concomitant]
     Active Substance: CLONIDINE
  11. HYDROCODONE [Concomitant]
     Active Substance: HYDROCODONE
  12. MIRTAZAPINE. [Concomitant]
     Active Substance: MIRTAZAPINE
  13. SILVER SULFADIAZINE. [Concomitant]
     Active Substance: SILVER SULFADIAZINE
  14. TRAZODONE [Concomitant]
     Active Substance: TRAZODONE HYDROCHLORIDE
  15. ANDROGEL [Concomitant]
     Active Substance: TESTOSTERONE
  16. DIOVEN [Concomitant]
  17. HYDROCHLOROTHIAZIDE. [Concomitant]
     Active Substance: HYDROCHLOROTHIAZIDE
  18. KLONOPIN [Concomitant]
     Active Substance: CLONAZEPAM
  19. ONDANSETRON [Concomitant]
     Active Substance: ONDANSETRON
  20. PANTOPRAZOLE [Concomitant]
     Active Substance: PANTOPRAZOLE
  21. VITAMIN D [COLECALCIFEROL] [Concomitant]
     Active Substance: CHOLECALCIFEROL
  22. ZOFRAN [Concomitant]
     Active Substance: ONDANSETRON HYDROCHLORIDE
  23. EPZICOM [Concomitant]
     Active Substance: ABACAVIR SULFATE\LAMIVUDINE
  24. BUPROPION. [Concomitant]
     Active Substance: BUPROPION
  25. CIALIS [Concomitant]
     Active Substance: TADALAFIL
  26. KLOR?CON [Concomitant]
     Active Substance: POTASSIUM CHLORIDE
  27. METOPROLOL. [Concomitant]
     Active Substance: METOPROLOL
  28. NORCO [Concomitant]
     Active Substance: ACETAMINOPHEN\HYDROCODONE BITARTRATE
  29. OMEPRAZOLE. [Concomitant]
     Active Substance: OMEPRAZOLE
  30. EXFORGE [Concomitant]
     Active Substance: AMLODIPINE BESYLATE\VALSARTAN
  31. LIPITOR [Concomitant]
     Active Substance: ATORVASTATIN CALCIUM
  32. NEVIRAPINE. [Concomitant]
     Active Substance: NEVIRAPINE
  33. PROMETHEGAN [Concomitant]
     Active Substance: PROMETHAZINE HYDROCHLORIDE
  34. SPIRONOLACTONE. [Concomitant]
     Active Substance: SPIRONOLACTONE
  35. TRUVADA [Suspect]
     Active Substance: EMTRICITABINE\TENOFOVIR DISOPROXIL FUMARATE
     Indication: HIV INFECTION
     Dosage: UNK
     Route: 048
     Dates: start: 2001, end: 2018
  36. VIREAD [Suspect]
     Active Substance: TENOFOVIR DISOPROXIL FUMARATE
     Dosage: UNK
     Route: 065
     Dates: start: 20090501, end: 20171205
  37. VIRAMUNE [Concomitant]
     Active Substance: NEVIRAPINE
  38. ABILIFY [Concomitant]
     Active Substance: ARIPIPRAZOLE
  39. DICYCLOMINE CO [Concomitant]
  40. METOCLOPRAMIDE. [Concomitant]
     Active Substance: METOCLOPRAMIDE
  41. POTASSIUM CHLORIDE. [Concomitant]
     Active Substance: POTASSIUM CHLORIDE
  42. PROMETHAZINE [Concomitant]
     Active Substance: PROMETHAZINE HYDROCHLORIDE
  43. REGLAN [Concomitant]
     Active Substance: METOCLOPRAMIDE HYDROCHLORIDE
  44. ZOLPIDEM TARTRATE. [Concomitant]
     Active Substance: ZOLPIDEM TARTRATE
  45. VIREAD [Suspect]
     Active Substance: TENOFOVIR DISOPROXIL FUMARATE
     Indication: HIV INFECTION
     Dosage: UNK
     Route: 048
     Dates: start: 2001, end: 2018
  46. ACYCLOVIR SODIUM. [Concomitant]
     Active Substance: ACYCLOVIR SODIUM
  47. ATORVASTATIN [Concomitant]
     Active Substance: ATORVASTATIN
  48. BENICAR [Concomitant]
     Active Substance: OLMESARTAN MEDOXOMIL
  49. CLONAZEPAM. [Concomitant]
     Active Substance: CLONAZEPAM
  50. KEPPRA [Concomitant]
     Active Substance: LEVETIRACETAM
  51. PHENADOZ [Concomitant]
     Active Substance: PROMETHAZINE HYDROCHLORIDE

REACTIONS (7)
  - Anxiety [Not Recovered/Not Resolved]
  - Pain [Not Recovered/Not Resolved]
  - Chronic kidney disease [Fatal]
  - Emotional distress [Not Recovered/Not Resolved]
  - Renal failure [Fatal]
  - Economic problem [Not Recovered/Not Resolved]
  - Anhedonia [Not Recovered/Not Resolved]
